FAERS Safety Report 12166632 (Version 1)
Quarter: 2016Q1

REPORT INFORMATION
  Report Type: Report from Study
  Country: US (occurrence: US)
  Receive Date: 20160310
  Receipt Date: 20160310
  Transmission Date: 20160526
  Serious: No
  Sender: FDA-Public Use
  Company Number: US-AMGEN-USASL2016027535

PATIENT
  Age: 71 Year
  Sex: Female

DRUGS (1)
  1. ENBREL [Suspect]
     Active Substance: ETANERCEPT
     Indication: PRODUCT USED FOR UNKNOWN INDICATION
     Dosage: UNK
     Route: 065
     Dates: start: 2015

REACTIONS (6)
  - Pain [Unknown]
  - Hypoaesthesia [Unknown]
  - Skin discolouration [Unknown]
  - Rash pruritic [Unknown]
  - Visual acuity reduced [Unknown]
  - Rash [Unknown]

NARRATIVE: CASE EVENT DATE: 201602
